FAERS Safety Report 20753782 (Version 1)
Quarter: 2022Q2

REPORT INFORMATION
  Report Type: Spontaneous
  Country: US (occurrence: None)
  Receive Date: 20220426
  Receipt Date: 20220426
  Transmission Date: 20220721
  Serious: No
  Sender: FDA-Public Use
  Company Number: US-ROCHE-3024866

PATIENT
  Sex: Male
  Weight: 77.180 kg

DRUGS (3)
  1. ESBRIET [Suspect]
     Active Substance: PIRFENIDONE
     Indication: Idiopathic pulmonary fibrosis
     Dosage: 1-267MG TABLET TAKEN FOR 1 WEEK WITH FOOD ?ONGOING: NO
     Route: 048
     Dates: start: 20220116
  2. ESBRIET [Suspect]
     Active Substance: PIRFENIDONE
     Dosage: 2-267MG TABLETS TAKEN FOR 1 WEEK WITH FOOD ;ONGOING: NO
     Route: 048
  3. ESBRIET [Suspect]
     Active Substance: PIRFENIDONE
     Dosage: 3-267MG TABLETS TAKEN WITH FOOD ;ONGOING: NO
     Route: 048
     Dates: end: 20220208

REACTIONS (1)
  - Abdominal discomfort [Recovered/Resolved]
